FAERS Safety Report 7206812-3 (Version None)
Quarter: 2010Q4

REPORT INFORMATION
  Report Type: 
  Country: None (occurrence: None)
  Receive Date: 20101217
  Receipt Date: 20101201
  Transmission Date: 20110411
  Serious: Yes (Death, Life-Threatening, Hospitalization, Other)
  Sender: FDA-Public Use
  Company Number: 1000017699

PATIENT
  Age: 85 Year
  Sex: Female

DRUGS (6)
  1. MEMANTINE [Suspect]
     Indication: DEMENTIA ALZHEIMER'S TYPE
     Dosage: 10 MG (10 MG, 1 IN 1 D), ORAL
     Route: 048
     Dates: start: 20080101, end: 20101023
  2. RISPERDAL [Suspect]
     Indication: DEMENTIA ALZHEIMER'S TYPE
     Dosage: 1 MG, (1 MG, 1 IN 1 D), ORAL
     Route: 048
  3. REPAGLINIDE [Suspect]
     Indication: DIABETES MELLITUS
     Dosage: 2 MG (2 MG, 1 IN 1 D), ORAL
     Route: 048
  4. PRECISCAN (FLUINDIONE) (TABLETS) [Suspect]
     Dosage: 20 MG (20 MG, 1 IN 1 D), ORAL
     Route: 048
     Dates: start: 20090101
  5. FUROSEMIDE [Suspect]
     Indication: HYPERTENSION
     Dosage: 20 MG (20 MG, 1 IN 1 D), ORAL
     Route: 048
  6. COVERSYL (PERINDOPRIL) (TABLETS) [Suspect]
     Indication: HYPERTENSION
     Dosage: 2.5 MG (2.5 MG, 1 IN 1 D), ORAL
     Route: 048

REACTIONS (2)
  - BACTERIAL INFECTION [None]
  - PANCREATITIS ACUTE [None]
